FAERS Safety Report 7367145-8 (Version None)
Quarter: 2011Q1

REPORT INFORMATION
  Report Type: 
  Country: None (occurrence: None)
  Receive Date: 20110310
  Receipt Date: 20110228
  Transmission Date: 20110831
  Serious: Yes (Other)
  Sender: FDA-Public Use
  Company Number: 027503

PATIENT
  Sex: Male
  Weight: 67.6 kg

DRUGS (11)
  1. DILTIAZEM [Concomitant]
  2. DEPONIT [Suspect]
     Indication: HYPERTENSION
     Dosage: (5-10 MG/DAY TRANSDERMAL)
     Route: 062
     Dates: start: 20110208, end: 20110214
  3. PRAVASTATIN [Concomitant]
  4. IRBESARTAN [Concomitant]
  5. CARVEDILOL [Concomitant]
  6. MOXONIDINE [Concomitant]
  7. WARFARIN SODIUM [Concomitant]
  8. GLYCERYL TRINITRATE (GTN INFUSION) [Suspect]
     Indication: HYPERTENSION
     Dates: start: 20110131
  9. DOXAZOSIN [Concomitant]
  10. FUROSEMIDE [Concomitant]
  11. HUMALOG [Concomitant]

REACTIONS (2)
  - RASH PRURITIC [None]
  - RASH GENERALISED [None]
